FAERS Safety Report 17798181 (Version 1)
Quarter: 2020Q2

REPORT INFORMATION
  Report Type: Spontaneous
  Country: US (occurrence: US)
  Receive Date: 20200517
  Receipt Date: 20200517
  Transmission Date: 20200714
  Serious: No
  Sender: FDA-Public Use
  Company Number: None

PATIENT
  Age: 48 Year
  Sex: Female
  Weight: 57.15 kg

DRUGS (4)
  1. VITAMIN B12 [Concomitant]
     Active Substance: CYANOCOBALAMIN
  2. MULTIVITAMIN [Concomitant]
     Active Substance: VITAMINS
  3. MULTAQ [Suspect]
     Active Substance: DRONEDARONE
  4. VITAMIN D [Concomitant]
     Active Substance: VITAMIN D NOS

REACTIONS (6)
  - Nausea [None]
  - Poor quality sleep [None]
  - Diarrhoea [None]
  - Insomnia [None]
  - Alopecia [None]
  - Drug ineffective [None]
